FAERS Safety Report 9583547 (Version 1)
Quarter: 2013Q4

REPORT INFORMATION
  Report Type: Spontaneous
  Country: US (occurrence: US)
  Receive Date: 20131002
  Receipt Date: 20131002
  Transmission Date: 20140711
  Serious: No
  Sender: FDA-Public Use
  Company Number: US-AMGEN-USASP2013047959

PATIENT
  Age: 64 Year
  Sex: Male

DRUGS (4)
  1. ENBREL [Suspect]
     Indication: RHEUMATOID ARTHRITIS
     Dosage: 50 MG, QWK
     Route: 065
     Dates: start: 20091204
  2. METHOTREXATE [Concomitant]
     Dosage: 5 TABLETS, QWK
  3. PREDNISONE [Concomitant]
     Dosage: UNK
  4. CRESTOR [Concomitant]
     Dosage: UNK

REACTIONS (5)
  - Mobility decreased [Not Recovered/Not Resolved]
  - Hepatic enzyme increased [Recovered/Resolved]
  - Arthralgia [Not Recovered/Not Resolved]
  - Swelling [Not Recovered/Not Resolved]
  - Blood cholesterol increased [Recovered/Resolved]
